FAERS Safety Report 7654925-4 (Version None)
Quarter: 2011Q3

REPORT INFORMATION
  Report Type: 
  Country: None (occurrence: None)
  Receive Date: 20110804
  Receipt Date: 20110722
  Transmission Date: 20111222
  Serious: Yes (Hospitalization)
  Sender: FDA-Public Use
  Company Number: BR-US-EMD SERONO, INC.-7062595

PATIENT
  Sex: Female

DRUGS (1)
  1. REBIF [Suspect]
     Indication: RELAPSING-REMITTING MULTIPLE SCLEROSIS
     Dates: start: 20101020

REACTIONS (7)
  - AUTOIMMUNE THYROIDITIS [None]
  - SINUSITIS [None]
  - MULTIPLE SCLEROSIS RELAPSE [None]
  - HYPOTENSION [None]
  - IMMUNODEFICIENCY [None]
  - HEART RATE DECREASED [None]
  - COCCYDYNIA [None]
